FAERS Safety Report 19251293 (Version 4)
Quarter: 2021Q3

REPORT INFORMATION
  Report Type: Spontaneous
  Country: JP (occurrence: JP)
  Receive Date: 20210513
  Receipt Date: 20210719
  Transmission Date: 20211014
  Serious: Yes (Hospitalization, Other)
  Sender: FDA-Public Use
  Company Number: JP-AMGEN-JPNSP2020058491

PATIENT
  Age: 60 Year
  Sex: Female
  Weight: 47.5 kg

DRUGS (33)
  1. OXAROL [Concomitant]
     Active Substance: MAXACALCITOL
     Dosage: 10 UG, Q84H
     Route: 065
     Dates: start: 20191108, end: 20191127
  2. OXAROL [Concomitant]
     Active Substance: MAXACALCITOL
     Dosage: 5 MUG, QW
     Route: 065
     Dates: start: 20200504, end: 20201109
  3. EPOGIN [Concomitant]
     Active Substance: ERYTHROPOIETIN
     Dosage: 1500 IU, QW
     Route: 065
     Dates: start: 20190522, end: 20190719
  4. P?TOL [SUCROFERRIC OXYHYDROXIDE] [Concomitant]
     Active Substance: SUCROFERRIC OXYHYDROXIDE
     Dosage: 1500 MILLIGRAM, QD
     Route: 048
     Dates: start: 20190802, end: 20200130
  5. PARSABIV [Suspect]
     Active Substance: ETELCALCETIDE HYDROCHLORIDE
     Dosage: 10 MILLIGRAM, Q56H
     Route: 010
     Dates: start: 20201225
  6. OXAROL [Concomitant]
     Active Substance: MAXACALCITOL
     Dosage: 5 UG, QW
     Route: 065
     Dates: start: 20200228, end: 20200325
  7. EPOGIN [Concomitant]
     Active Substance: ERYTHROPOIETIN
     Dosage: 3000 IU, QW
     Route: 065
     Dates: end: 20180424
  8. OXAROL [Concomitant]
     Active Substance: MAXACALCITOL
     Dosage: 10 UG, Q84H
     Route: 065
     Dates: start: 20191129, end: 20191202
  9. EPOGIN [Concomitant]
     Active Substance: ERYTHROPOIETIN
     Dosage: 9000 IU, QW
     Route: 065
     Dates: start: 20180426, end: 20180912
  10. EPOGIN [Concomitant]
     Active Substance: ERYTHROPOIETIN
     Dosage: 1500 IU, QW
     Route: 065
     Dates: start: 20210120
  11. OXAROL [Concomitant]
     Active Substance: MAXACALCITOL
     Dosage: 5 UG, Q84H
     Route: 065
     Dates: start: 20180903, end: 20190805
  12. OXAROL [Concomitant]
     Active Substance: MAXACALCITOL
     Dosage: 5 MUG, QW
     Route: 065
     Dates: start: 20210315
  13. EPOGIN [Concomitant]
     Active Substance: ERYTHROPOIETIN
     Dosage: 9000 IU, QW
     Route: 065
     Dates: start: 20201224, end: 20210118
  14. P?TOL [SUCROFERRIC OXYHYDROXIDE] [Concomitant]
     Active Substance: SUCROFERRIC OXYHYDROXIDE
     Dosage: 1500 MILLIGRAM, QD
     Route: 048
     Dates: start: 20210201
  15. OXAROL [Concomitant]
     Active Substance: MAXACALCITOL
     Dosage: 5 UG, Q84H
     Route: 065
     Dates: end: 20180723
  16. OXAROL [Concomitant]
     Active Substance: MAXACALCITOL
     Dosage: 5 UG, QW
     Route: 065
     Dates: start: 20190807, end: 20190902
  17. OXAROL [Concomitant]
     Active Substance: MAXACALCITOL
     Dosage: 5 MUG, Q56H
     Route: 065
     Dates: start: 20210127, end: 20210208
  18. PARSABIV [Suspect]
     Active Substance: ETELCALCETIDE HYDROCHLORIDE
     Indication: HYPERPARATHYROIDISM SECONDARY
     Dosage: 5 MILLIGRAM, Q56H
     Route: 010
     Dates: start: 20190823, end: 20190916
  19. OXAROL [Concomitant]
     Active Substance: MAXACALCITOL
     Dosage: 5 UG, QW
     Route: 065
     Dates: start: 20200327, end: 20200427
  20. EPOGIN [Concomitant]
     Active Substance: ERYTHROPOIETIN
     Dosage: 6000 IU, QW
     Route: 065
     Dates: start: 20200318, end: 20201222
  21. P?TOL [SUCROFERRIC OXYHYDROXIDE] [Concomitant]
     Active Substance: SUCROFERRIC OXYHYDROXIDE
     Dosage: 2250 MILLIGRAM, QD
     Route: 048
     Dates: start: 20200131, end: 20201213
  22. OXAROL [Concomitant]
     Active Substance: MAXACALCITOL
     Dosage: 5 UG, Q56H
     Route: 065
     Dates: start: 20191101, end: 20191106
  23. OXAROL [Concomitant]
     Active Substance: MAXACALCITOL
     Dosage: 5 UG, QW
     Route: 065
     Dates: start: 20191108, end: 20191127
  24. OXAROL [Concomitant]
     Active Substance: MAXACALCITOL
     Dosage: 5 MUG, QW
     Route: 065
     Dates: start: 20201225, end: 20210125
  25. EPOGIN [Concomitant]
     Active Substance: ERYTHROPOIETIN
     Dosage: 9000 IU, QW
     Route: 065
     Dates: start: 20190303, end: 20190520
  26. PARSABIV [Suspect]
     Active Substance: ETELCALCETIDE HYDROCHLORIDE
     Dosage: 7.5 MILLIGRAM, Q56H
     Route: 010
     Dates: start: 20190918, end: 20191127
  27. PARSABIV [Suspect]
     Active Substance: ETELCALCETIDE HYDROCHLORIDE
     Dosage: 10 MILLIGRAM, Q56H
     Route: 010
     Dates: start: 20191129, end: 20201111
  28. OXAROL [Concomitant]
     Active Substance: MAXACALCITOL
     Dosage: 2.5 UG, QW
     Route: 065
     Dates: start: 20190807, end: 20190902
  29. OXAROL [Concomitant]
     Active Substance: MAXACALCITOL
     Dosage: 5 UG, Q84H
     Route: 065
     Dates: start: 20191206, end: 20200226
  30. OXAROL [Concomitant]
     Active Substance: MAXACALCITOL
     Dosage: 5 MUG, Q84H
     Route: 065
     Dates: start: 20210210, end: 20210308
  31. EPOGIN [Concomitant]
     Active Substance: ERYTHROPOIETIN
     Dosage: 6000 IU, QW
     Route: 065
     Dates: start: 20181107, end: 20190227
  32. EPOGIN [Concomitant]
     Active Substance: ERYTHROPOIETIN
     Dosage: 6000 IU, QW
     Route: 065
     Dates: start: 20190722, end: 20190819
  33. EPOGIN [Concomitant]
     Active Substance: ERYTHROPOIETIN
     Dosage: 1500 IU, QW
     Route: 065
     Dates: start: 20190822, end: 20191104

REACTIONS (3)
  - Spondylolisthesis [Recovered/Resolved]
  - Shunt occlusion [Recovered/Resolved]
  - Carnitine deficiency [Recovered/Resolved]

NARRATIVE: CASE EVENT DATE: 20191106
